FAERS Safety Report 23769011 (Version 4)
Quarter: 2024Q3

REPORT INFORMATION
  Report Type: Report from Study
  Country: JP (occurrence: JP)
  Receive Date: 20240422
  Receipt Date: 20240907
  Transmission Date: 20241016
  Serious: Yes (Death, Life-Threatening, Hospitalization)
  Sender: SHIONOGI
  Company Number: JP-shionogi-202403148_FTR_P_1

PATIENT

DRUGS (91)
  1. FETROJA [Suspect]
     Active Substance: CEFIDEROCOL SULFATE TOSYLATE
     Indication: Enterocolitis
     Dosage: 2 G, QD
     Route: 041
     Dates: start: 20240406, end: 20240406
  2. FETROJA [Suspect]
     Active Substance: CEFIDEROCOL SULFATE TOSYLATE
     Indication: Febrile neutropenia
     Dosage: 2 G, PRN8
     Route: 041
     Dates: start: 20240407, end: 20240416
  3. FLAGYL [Concomitant]
     Active Substance: METRONIDAZOLE\METRONIDAZOLE HYDROCHLORIDE
     Indication: Febrile neutropenia
     Dosage: 500 MG, PRN8
     Route: 048
     Dates: start: 20240401, end: 20240412
  4. FLAGYL [Concomitant]
     Active Substance: METRONIDAZOLE\METRONIDAZOLE HYDROCHLORIDE
     Indication: Enterocolitis
  5. URSODIOL [Concomitant]
     Active Substance: URSODIOL
     Dosage: 200 MG, PRN8
     Route: 065
     Dates: start: 20240406, end: 20240410
  6. UBIDECARENONE [Concomitant]
     Active Substance: UBIDECARENONE
     Dosage: 10 MG, PRN8
     Route: 065
     Dates: start: 20240406, end: 20240410
  7. TOCOPHEROL [Concomitant]
     Active Substance: TOCOPHEROL
     Dosage: 200 MG, PRN8
     Route: 065
     Dates: start: 20240406, end: 20240410
  8. ESOMEPRAZOLE [Concomitant]
     Active Substance: ESOMEPRAZOLE
     Dosage: 20 MG, QD
     Route: 065
     Dates: start: 20240406, end: 20240410
  9. IRSOGLADINE MALEATE [Concomitant]
     Active Substance: IRSOGLADINE MALEATE
     Dosage: 4 MG, QD
     Route: 065
     Dates: start: 20240406, end: 20240410
  10. MIYA-BM [Concomitant]
     Active Substance: CLOSTRIDIUM BUTYRICUM SPORES STRAIN M-55
     Dosage: 2 {DF}, PRN8
     Route: 065
     Dates: start: 20240406, end: 20240410
  11. PENTASA [Concomitant]
     Active Substance: MESALAMINE
     Dosage: 2000 MG, 1 PER 12 HOUR
     Route: 065
     Dates: start: 20240406, end: 20240410
  12. DEFERASIROX [Concomitant]
     Active Substance: DEFERASIROX
     Dosage: 810 MG, QD
     Route: 065
     Dates: start: 20240406, end: 20240410
  13. LEVOFLOXACIN HEMIHYDRATE [Concomitant]
     Active Substance: LEVOFLOXACIN
     Indication: Febrile neutropenia
     Dosage: 250 MG, QD
     Route: 048
     Dates: start: 20240329, end: 20240410
  14. LEVOFLOXACIN HEMIHYDRATE [Concomitant]
     Active Substance: LEVOFLOXACIN
     Indication: Enterocolitis
  15. CALONAL [Concomitant]
     Active Substance: ACETAMINOPHEN
     Dosage: 400 MG, PRN
     Route: 065
     Dates: start: 20240406, end: 20240411
  16. VANCOMYCIN HYDROCHLORIDE [Concomitant]
     Active Substance: VANCOMYCIN HYDROCHLORIDE
     Dosage: 0.5 G, PRN6
     Route: 065
     Dates: start: 20240412, end: 20240413
  17. WHITE PETROLATUM [Concomitant]
     Active Substance: PETROLATUM
     Dosage: QS
     Route: 061
     Dates: start: 20240412, end: 20240412
  18. ZINC OXIDE [Concomitant]
     Active Substance: ZINC OXIDE
     Dosage: QS
     Route: 061
     Dates: start: 20240413, end: 20240414
  19. BETAMETHASONE DIPROPIONATE [Concomitant]
     Active Substance: BETAMETHASONE DIPROPIONATE
     Dosage: TWICE DAILY
     Route: 061
     Dates: start: 20240414, end: 20240414
  20. FILGRASTIM [Concomitant]
     Active Substance: FILGRASTIM
     Dosage: 75 UG, QD
     Route: 058
     Dates: start: 20240406, end: 20240407
  21. FILGRASTIM [Concomitant]
     Active Substance: FILGRASTIM
     Dosage: 150 UG, QD
     Route: 058
     Dates: start: 20240408, end: 20240416
  22. HEPARIN SODIUM [Concomitant]
     Active Substance: HEPARIN SODIUM
     Dosage: 1500 [IU], QD
     Route: 042
     Dates: start: 20240406, end: 20240406
  23. HEPARIN SODIUM [Concomitant]
     Active Substance: HEPARIN SODIUM
     Dosage: 2000 [IU], QD
     Route: 042
     Dates: start: 20240407, end: 20240407
  24. HEPARIN SODIUM [Concomitant]
     Active Substance: HEPARIN SODIUM
     Dosage: 1500 [IU], QD
     Route: 042
     Dates: start: 20240408, end: 20240408
  25. HEPARIN SODIUM [Concomitant]
     Active Substance: HEPARIN SODIUM
     Dosage: 2550 [IU], QD
     Route: 042
     Dates: start: 20240415, end: 20240415
  26. ISOTONIC SODIUM CHLORIDE SOLUTION [Concomitant]
     Active Substance: SODIUM CHLORIDE
     Indication: Septic shock
     Dosage: UNK
     Route: 042
     Dates: start: 20240406, end: 20240416
  27. ISOTONIC SODIUM CHLORIDE SOLUTION [Concomitant]
     Active Substance: SODIUM CHLORIDE
     Dosage: UNK
     Route: 041
     Dates: start: 20240406, end: 20240416
  28. ISOTONIC SODIUM CHLORIDE SOLUTION [Concomitant]
     Active Substance: SODIUM CHLORIDE
     Dosage: UNK
     Route: 050
     Dates: start: 20240408, end: 20240416
  29. ISOTONIC SODIUM CHLORIDE SOLUTION [Concomitant]
     Active Substance: SODIUM CHLORIDE
     Dosage: 48 ML, QD
     Route: 042
     Dates: start: 20240415, end: 20240416
  30. ISOTONIC SODIUM CHLORIDE SOLUTION [Concomitant]
     Active Substance: SODIUM CHLORIDE
     Dosage: 1000 ML, QD
     Route: 041
     Dates: start: 20240408, end: 20240408
  31. ISOTONIC SODIUM CHLORIDE SOLUTION [Concomitant]
     Active Substance: SODIUM CHLORIDE
     Dosage: 1000 ML, QD
     Route: 041
     Dates: start: 20240415, end: 20240415
  32. ISOTONIC SODIUM CHLORIDE SOLUTION [Concomitant]
     Active Substance: SODIUM CHLORIDE
     Dosage: 2000 ML, QD
     Route: 042
     Dates: start: 20240415, end: 20240416
  33. EXACIN [ISEPAMICIN SULFATE] [Concomitant]
     Indication: Febrile neutropenia
     Dosage: 400 MG, QD
     Route: 041
     Dates: start: 20240403, end: 20240408
  34. EXACIN [ISEPAMICIN SULFATE] [Concomitant]
     Indication: Enterocolitis
  35. HYDROCORTISONE SODIUM SUCCINATE [Concomitant]
     Active Substance: HYDROCORTISONE SODIUM SUCCINATE
     Dosage: UNK
     Route: 042
     Dates: start: 20240406, end: 20240415
  36. HYDROCORTISONE SODIUM SUCCINATE [Concomitant]
     Active Substance: HYDROCORTISONE SODIUM SUCCINATE
     Dosage: 200 MG, QD
     Route: 042
     Dates: start: 20240415, end: 20240416
  37. ACETAMINOPHEN [Concomitant]
     Active Substance: ACETAMINOPHEN
     Dosage: UNK
     Route: 041
     Dates: start: 20240406, end: 20240415
  38. POLARAMINE [Concomitant]
     Active Substance: DEXCHLORPHENIRAMINE MALEATE
     Indication: Prophylaxis
     Dosage: 5 MG, QD
     Route: 042
     Dates: start: 20240407, end: 20240414
  39. POLARAMINE [Concomitant]
     Active Substance: DEXCHLORPHENIRAMINE MALEATE
     Dosage: 10 MG, QD
     Route: 041
     Dates: start: 20240415, end: 20240415
  40. POLARAMINE [Concomitant]
     Active Substance: DEXCHLORPHENIRAMINE MALEATE
     Dosage: 5 MG, QD
     Route: 041
     Dates: start: 20240416, end: 20240416
  41. HISHIPHAGEN C [CYSTEINE HYDROCHLORIDE;GLYCINE;GLYCYRRHIZIC ACID, AMMON [Concomitant]
     Indication: Prophylaxis
     Dosage: 20 ML, QD
     Route: 042
     Dates: start: 20240407, end: 20240414
  42. HISHIPHAGEN C [CYSTEINE HYDROCHLORIDE;GLYCINE;GLYCYRRHIZIC ACID, AMMON [Concomitant]
     Dosage: 40 ML, QD
     Route: 042
     Dates: start: 20240415, end: 20240415
  43. HISHIPHAGEN C [CYSTEINE HYDROCHLORIDE;GLYCINE;GLYCYRRHIZIC ACID, AMMON [Concomitant]
     Dosage: 20 ML, QD
     Route: 042
     Dates: start: 20240416, end: 20240416
  44. DAPTOMYCIN [Concomitant]
     Active Substance: DAPTOMYCIN
     Indication: Prophylaxis
     Dosage: 350 MG, QD
     Route: 041
     Dates: start: 20240407, end: 20240416
  45. OMEPRAZOLE SODIUM [Concomitant]
     Active Substance: OMEPRAZOLE SODIUM
     Dosage: 20 MG, QD
     Route: 042
     Dates: start: 20240408, end: 20240408
  46. OMEPRAZOLE SODIUM [Concomitant]
     Active Substance: OMEPRAZOLE SODIUM
     Dosage: 40 MG, QD
     Route: 042
     Dates: start: 20240409, end: 20240416
  47. AMINO ACIDS\DEXTROSE\ELECTROLYTES NOS\VITAMINS [Concomitant]
     Active Substance: AMINO ACIDS\DEXTROSE\ELECTROLYTES NOS\VITAMINS
     Dosage: 1000 ML, QD
     Route: 041
     Dates: start: 20240409, end: 20240409
  48. ELNEOPA NF NO.1 [Concomitant]
     Dosage: 1000 ML, QD
     Route: 050
     Dates: start: 20240410, end: 20240412
  49. HUMULIN R [Concomitant]
     Active Substance: INSULIN HUMAN
     Dosage: 6000 [IU], QD
     Route: 050
     Dates: start: 20240410, end: 20240412
  50. HUMULIN R [Concomitant]
     Active Substance: INSULIN HUMAN
     Dosage: 11000 [IU], QD
     Route: 050
     Dates: start: 20240413, end: 20240413
  51. HUMULIN R [Concomitant]
     Active Substance: INSULIN HUMAN
     Dosage: 22000 [IU], QD
     Route: 050
     Dates: start: 20240414, end: 20240415
  52. WATER FOR INJECTION [Concomitant]
     Active Substance: WATER
     Dosage: 80 ML, QD
     Route: 050
     Dates: start: 20240412, end: 20240412
  53. WATER FOR INJECTION [Concomitant]
     Active Substance: WATER
     Dosage: 80 ML, QD
     Route: 050
     Dates: start: 20240415, end: 20240416
  54. METRONIDAZOLE [Concomitant]
     Active Substance: METRONIDAZOLE
     Dosage: UNK
     Route: 041
     Dates: start: 20240412, end: 20240416
  55. AMINO ACIDS\DEXTROSE\ELECTROLYTES NOS\MINERALS\VITAMINS [Concomitant]
     Active Substance: AMINO ACIDS\DEXTROSE\ELECTROLYTES NOS\MINERALS\VITAMINS
     Dosage: 1000 ML, QD
     Route: 050
     Dates: start: 20240413, end: 20240413
  56. AMINO ACIDS\DEXTROSE\ELECTROLYTES NOS\MINERALS\VITAMINS [Concomitant]
     Active Substance: AMINO ACIDS\DEXTROSE\ELECTROLYTES NOS\MINERALS\VITAMINS
     Dosage: 2000 ML, QD
     Route: 050
     Dates: start: 20240414, end: 20240415
  57. MICAFUNGIN SODIUM [Concomitant]
     Active Substance: MICAFUNGIN SODIUM
     Indication: Prophylaxis
     Dosage: 150 MG, QD
     Route: 041
     Dates: start: 20240413, end: 20240416
  58. REMIFENTANIL HYDROCHLORIDE [Concomitant]
     Active Substance: REMIFENTANIL HYDROCHLORIDE
     Indication: Prophylaxis
     Dosage: 4 MG, QD
     Route: 042
     Dates: start: 20240415, end: 20240416
  59. DEXMEDETOMIDINE [Concomitant]
     Active Substance: DEXMEDETOMIDINE
     Indication: Prophylaxis
     Dosage: 800 UG, QD
     Route: 042
     Dates: start: 20240415, end: 20240415
  60. DEXMEDETOMIDINE [Concomitant]
     Active Substance: DEXMEDETOMIDINE
     Dosage: 600 UG, QD
     Route: 042
     Dates: start: 20240416, end: 20240416
  61. CALCIUM CHLORIDE\MAGNESIUM CHLORIDE\POTASSIUM CHLORIDE\SODIUM ACETATE\ [Concomitant]
     Active Substance: CALCIUM CHLORIDE\MAGNESIUM CHLORIDE\POTASSIUM CHLORIDE\SODIUM ACETATE\SODIUM CHLORIDE
     Dosage: 1500 ML, QD
     Route: 041
     Dates: start: 20240415, end: 20240415
  62. MIDAZOLAM [Concomitant]
     Active Substance: MIDAZOLAM
     Indication: Prophylaxis
     Dosage: 10 MG, QD
     Route: 042
     Dates: start: 20240415, end: 20240415
  63. ROCURONIUM BROMIDE [Concomitant]
     Active Substance: ROCURONIUM BROMIDE
     Indication: Prophylaxis
     Dosage: 50 MG, QD
     Route: 042
     Dates: start: 20240415, end: 20240415
  64. HEPARIN SODIUM [Concomitant]
     Active Substance: HEPARIN SODIUM
     Dosage: 1000 [IU], QD
     Route: 042
     Dates: start: 20240415, end: 20240415
  65. XYLOCAINE [Concomitant]
     Active Substance: LIDOCAINE HYDROCHLORIDE
     Dosage: 50 MG, QD
     Route: 058
     Dates: start: 20240415, end: 20240415
  66. DEXTROSE [Concomitant]
     Active Substance: DEXTROSE\DEXTROSE MONOHYDRATE
     Indication: Hypoglycaemia
     Dosage: 140 ML, QD
     Route: 042
     Dates: start: 20240415, end: 20240415
  67. DEXTROSE [Concomitant]
     Active Substance: DEXTROSE\DEXTROSE MONOHYDRATE
     Dosage: 40 ML, QD
     Route: 041
     Dates: start: 20240415, end: 20240415
  68. DEXTROSE [Concomitant]
     Active Substance: DEXTROSE\DEXTROSE MONOHYDRATE
     Dosage: 500 ML, QD
     Route: 042
     Dates: start: 20240416, end: 20240416
  69. SOLITA T NO. 1 [Concomitant]
     Dosage: 1000 ML, QD
     Route: 041
     Dates: start: 20240416, end: 20240416
  70. NOREPINEPHRINE [Concomitant]
     Active Substance: NOREPINEPHRINE\NOREPINEPHRINE BITARTRATE
     Indication: Septic shock
     Dosage: 5 MG, QD
     Route: 041
     Dates: start: 20240407, end: 20240416
  71. KCL [Concomitant]
     Active Substance: POTASSIUM CHLORIDE
     Indication: Hypokalaemia
     Dosage: 2 MOL, QD
     Route: 041
     Dates: start: 20240408, end: 20240408
  72. KCL [Concomitant]
     Active Substance: POTASSIUM CHLORIDE
     Dosage: 1 MOL, QD
     Route: 041
     Dates: start: 20240409, end: 20240411
  73. KCL [Concomitant]
     Active Substance: POTASSIUM CHLORIDE
     Dosage: 2 MOL, QD
     Route: 050
     Dates: start: 20240410, end: 20240412
  74. KCL [Concomitant]
     Active Substance: POTASSIUM CHLORIDE
     Dosage: 2 MOL, QD
     Route: 041
     Dates: start: 20240412, end: 20240413
  75. KCL [Concomitant]
     Active Substance: POTASSIUM CHLORIDE
     Dosage: 3.5 MOL, QD
     Route: 050
     Dates: start: 20240413, end: 20240413
  76. KCL [Concomitant]
     Active Substance: POTASSIUM CHLORIDE
     Dosage: 3 MOL, QD
     Route: 050
     Dates: start: 20240414, end: 20240415
  77. MAGNESIUM SULFATE [Concomitant]
     Active Substance: MAGNESIUM SULFATE\MAGNESIUM SULFATE HEPTAHYDRATE
     Indication: Hypomagnesaemia
     Dosage: 1 MEQ, QD
     Route: 041
     Dates: start: 20240408, end: 20240408
  78. MAGNESIUM SULFATE [Concomitant]
     Active Substance: MAGNESIUM SULFATE\MAGNESIUM SULFATE HEPTAHYDRATE
     Dosage: 1 MEQ, QD
     Route: 041
     Dates: start: 20240410, end: 20240410
  79. DIBASIC POTASSIUM PHOSPHATE [Concomitant]
     Active Substance: DIBASIC POTASSIUM PHOSPHATE
     Indication: Hypophosphataemia
     Dosage: 20 MEQ, QD
     Route: 050
     Dates: start: 20240413, end: 20240414
  80. DIBASIC POTASSIUM PHOSPHATE [Concomitant]
     Active Substance: DIBASIC POTASSIUM PHOSPHATE
     Dosage: 40 MEQ, QD
     Route: 050
     Dates: start: 20240415, end: 20240415
  81. ANTITHROMBIN III HUMAN [Concomitant]
     Active Substance: ANTITHROMBIN III HUMAN
     Indication: Disseminated intravascular coagulation
     Dosage: 1500 [IU], QD
     Route: 041
     Dates: start: 20240415, end: 20240416
  82. PITRESSIN [Concomitant]
     Active Substance: VASOPRESSIN
     Indication: Septic shock
     Dosage: 40 [IU], QD
     Route: 042
     Dates: start: 20240415, end: 20240416
  83. EPINEPHRINE [Concomitant]
     Active Substance: EPINEPHRINE
     Indication: Septic shock
     Dosage: 4 MG, QD
     Route: 042
     Dates: start: 20240415, end: 20240415
  84. EPINEPHRINE [Concomitant]
     Active Substance: EPINEPHRINE
     Dosage: 9 MG, QD
     Route: 042
     Dates: start: 20240416, end: 20240416
  85. MEYLON [Concomitant]
     Active Substance: SODIUM BICARBONATE
     Indication: Metabolic acidosis
     Dosage: 750 ML, QD
     Route: 041
     Dates: start: 20240415, end: 20240415
  86. MEYLON [Concomitant]
     Active Substance: SODIUM BICARBONATE
     Dosage: 250 ML, QD
     Route: 042
     Dates: start: 20240415, end: 20240415
  87. MEYLON [Concomitant]
     Active Substance: SODIUM BICARBONATE
     Dosage: 250 ML, QD
     Route: 041
     Dates: start: 20240416, end: 20240416
  88. CALCIUM GLUCONATE [Concomitant]
     Active Substance: CALCIUM GLUCONATE
     Indication: Hypocalcaemia
     Dosage: 20 ML, QD
     Route: 042
     Dates: start: 20240415, end: 20240415
  89. NAFAMOSTAT MESYLATE [Concomitant]
     Active Substance: NAFAMOSTAT MESYLATE
     Indication: Disseminated intravascular coagulation
     Dosage: 4 MG, QD
     Route: 042
     Dates: start: 20240415, end: 20240415
  90. NAFAMOSTAT MESYLATE [Concomitant]
     Active Substance: NAFAMOSTAT MESYLATE
     Dosage: 2 MG, QD
     Route: 042
     Dates: start: 20240416, end: 20240416
  91. SUBLOOD BSG [Concomitant]
     Indication: Acute kidney injury
     Dosage: 14140 ML, QD
     Route: 042
     Dates: start: 20240415, end: 20240415

REACTIONS (11)
  - Septic shock [Fatal]
  - Disseminated intravascular coagulation [Not Recovered/Not Resolved]
  - Acute kidney injury [Not Recovered/Not Resolved]
  - Metabolic acidosis [Not Recovered/Not Resolved]
  - Acute respiratory failure [Not Recovered/Not Resolved]
  - Hypoglycaemia [Not Recovered/Not Resolved]
  - Hypophosphataemia [Not Recovered/Not Resolved]
  - Hypokalaemia [Not Recovered/Not Resolved]
  - Hypocalcaemia [Not Recovered/Not Resolved]
  - Hypomagnesaemia [Recovered/Resolved]
  - Hypermagnesaemia [Not Recovered/Not Resolved]

NARRATIVE: CASE EVENT DATE: 20240407
